FAERS Safety Report 16285563 (Version 1)
Quarter: 2019Q2

REPORT INFORMATION
  Report Type: Spontaneous
  Country: US (occurrence: US)
  Receive Date: 20190508
  Receipt Date: 20190508
  Transmission Date: 20190711
  Serious: Yes (Other)
  Sender: FDA-Public Use
  Company Number: PHEH2019US019230

PATIENT
  Sex: Female

DRUGS (2)
  1. TYGACIL [Suspect]
     Active Substance: TIGECYCLINE
     Indication: MYCOBACTERIAL INFECTION
     Dosage: UNK
     Route: 065
  2. ISONIAZID. [Suspect]
     Active Substance: ISONIAZID
     Indication: MYCOBACTERIAL INFECTION
     Dosage: UNK
     Route: 065

REACTIONS (6)
  - Osteomyelitis [Not Recovered/Not Resolved]
  - Condition aggravated [Unknown]
  - Retroperitoneal abscess [Unknown]
  - Skin ulcer [Unknown]
  - Mycobacterial infection [Unknown]
  - Retroperitoneal mass [Unknown]
